FAERS Safety Report 19274289 (Version 1)
Quarter: 2021Q2

REPORT INFORMATION
  Report Type: Spontaneous
  Country: US (occurrence: US)
  Receive Date: 20210519
  Receipt Date: 20210519
  Transmission Date: 20210717
  Serious: Yes (Life-Threatening, Hospitalization, Other)
  Sender: FDA-Public Use
  Company Number: None

PATIENT
  Age: 20 Year
  Sex: Female
  Weight: 56.5 kg

DRUGS (2)
  1. APRISO [Concomitant]
     Active Substance: MESALAMINE
     Dates: start: 20180120
  2. AVSOLA [Suspect]
     Active Substance: INFLIXIMAB-AXXQ
     Indication: CROHN^S DISEASE
     Dosage: ?          OTHER FREQUENCY:Q6 WEEKS;?
     Route: 042
     Dates: start: 20210316, end: 20210427

REACTIONS (9)
  - Rash pruritic [None]
  - Abdominal pain [None]
  - Vomiting [None]
  - Fatigue [None]
  - Dyspnoea [None]
  - Tryptase increased [None]
  - Oropharyngeal discomfort [None]
  - Urticaria [None]
  - Diarrhoea [None]

NARRATIVE: CASE EVENT DATE: 20210427
